FAERS Safety Report 4583566-0 (Version None)
Quarter: 2005Q1

REPORT INFORMATION
  Report Type: 
  Country: None (occurrence: None)
  Receive Date: 20050211
  Receipt Date: 20050201
  Transmission Date: 20050727
  Serious: Yes (Other)
  Sender: FDA-Public Use
  Company Number: 2005024489

PATIENT
  Sex: Male

DRUGS (1)
  1. NICORETTE [Suspect]
     Indication: SMOKING CESSATION THERAPY
     Dosage: 2 CARTRIDGES DAILY, INHALATION
     Route: 055
     Dates: start: 20020101

REACTIONS (3)
  - ANXIETY [None]
  - DRUG DEPENDENCE [None]
  - MEDICATION ERROR [None]
